FAERS Safety Report 20053050 (Version 3)
Quarter: 2021Q4

REPORT INFORMATION
  Report Type: Spontaneous
  Country: JP (occurrence: JP)
  Receive Date: 20211110
  Receipt Date: 20211221
  Transmission Date: 20220304
  Serious: Yes (Hospitalization, Other)
  Sender: FDA-Public Use
  Company Number: JP-ONO-2021JP027525

PATIENT
  Age: 6 Decade
  Sex: Male

DRUGS (7)
  1. BRAFTOVI [Suspect]
     Active Substance: ENCORAFENIB
     Indication: Colon cancer
     Dosage: 300 MG
     Route: 048
     Dates: start: 20211014, end: 20211101
  2. BRAFTOVI [Suspect]
     Active Substance: ENCORAFENIB
     Dosage: 300 MG
     Route: 048
     Dates: start: 20211108
  3. CETUXIMAB [Concomitant]
     Active Substance: CETUXIMAB
     Indication: Colon cancer
     Dosage: 600 MG
     Route: 065
     Dates: start: 20211014
  4. CETUXIMAB [Concomitant]
     Active Substance: CETUXIMAB
     Dosage: 300 MG
     Route: 065
     Dates: start: 20211021, end: 20211028
  5. CETUXIMAB [Concomitant]
     Active Substance: CETUXIMAB
     Dosage: 380 MG
     Route: 065
     Dates: start: 20211108
  6. PILSICAINIDE HYDROCHLORIDE [Concomitant]
     Active Substance: PILSICAINIDE HYDROCHLORIDE
     Dosage: UNK
     Route: 065
     Dates: end: 20211101
  7. PILSICAINIDE HYDROCHLORIDE [Concomitant]
     Active Substance: PILSICAINIDE HYDROCHLORIDE
     Dosage: UNK
     Route: 065
     Dates: start: 20211104

REACTIONS (4)
  - Electrocardiogram QT prolonged [Recovering/Resolving]
  - Thrombocytopenia [Unknown]
  - Laboratory test abnormal [Unknown]
  - Tachycardia [Recovering/Resolving]

NARRATIVE: CASE EVENT DATE: 20211101
